FAERS Safety Report 18955935 (Version 1)
Quarter: 2021Q1

REPORT INFORMATION
  Report Type: Spontaneous
  Country: US (occurrence: US)
  Receive Date: 20210301
  Receipt Date: 20210301
  Transmission Date: 20210420
  Serious: No
  Sender: FDA-Public Use
  Company Number: US-ASTRAZENECA-2021A085086

PATIENT
  Sex: Female
  Weight: 72.6 kg

DRUGS (2)
  1. TAGRISSO [Suspect]
     Active Substance: OSIMERTINIB
     Indication: LUNG NEOPLASM MALIGNANT
     Route: 048
  2. TAGRISSO [Suspect]
     Active Substance: OSIMERTINIB
     Indication: BRAIN CANCER METASTATIC
     Route: 048

REACTIONS (5)
  - Cluster headache [Unknown]
  - Orthostatic hypotension [Unknown]
  - Vision blurred [Unknown]
  - Dizziness [Unknown]
  - Balance disorder [Unknown]
